FAERS Safety Report 4381366-8 (Version None)
Quarter: 2004Q2

REPORT INFORMATION
  Report Type: 
  Country: None (occurrence: None)
  Receive Date: 20040617
  Receipt Date: 20040617
  Transmission Date: 20050107
  Serious: Yes (Life-Threatening, Hospitalization)
  Sender: FDA-Public Use
  Company Number: None

PATIENT
  Age: 57 Year
  Sex: Male
  Weight: 39.8712 kg

DRUGS (24)
  1. CARBOPLATIN [Suspect]
     Indication: LYMPHOMA
     Dosage: 945 MG Q DAY IV BOLUS
     Route: 040
     Dates: start: 20040518, end: 20040520
  2. CYTOXAN [Suspect]
     Indication: LYMPHOMA
     Dosage: 5.35 G /Q DAY IV BOLUS
     Dates: start: 20040521, end: 20040522
  3. ETOPOSIDE [Suspect]
     Indication: LYMPHOMA
     Dosage: 367 MG QID IV BOLUS
     Route: 040
     Dates: start: 20040518, end: 20040521
  4. DIGOXIN [Concomitant]
  5. INSULIN [Concomitant]
  6. LEVALBUTEROL [Concomitant]
  7. IPRATROPIUM BROMIDE [Concomitant]
  8. MORPHINE [Concomitant]
  9. METRONIDAZOLE [Concomitant]
  10. PANTOPRAZOLE [Concomitant]
  11. ACYCLOVIR` [Concomitant]
  12. PANTOPRAZOLE [Concomitant]
  13. ACYCLOVIR [Concomitant]
  14. METHYLPREDNISOLONE [Concomitant]
  15. LEVOFLOXACIN [Concomitant]
  16. BACTRIM [Concomitant]
  17. MEROPENEM [Concomitant]
  18. LEPERAMIDE [Concomitant]
  19. MOUTHWASH [Concomitant]
  20. LORAZEPAM [Concomitant]
  21. LEUCOVORIN [Concomitant]
  22. CASPOFUNGIN [Concomitant]
  23. CHLORHEXIDINE [Concomitant]
  24. PSYLLIUM POWDER [Concomitant]

REACTIONS (7)
  - ATRIAL FIBRILLATION [None]
  - DYSPNOEA [None]
  - ENCEPHALITIS [None]
  - FUNGAL INFECTION [None]
  - NUCLEAR MAGNETIC RESONANCE IMAGING ABNORMAL [None]
  - PROGRESSIVE MULTIFOCAL LEUKOENCEPHALOPATHY [None]
  - SEPTIC SHOCK [None]
